FAERS Safety Report 7664610-0 (Version None)
Quarter: 2011Q3

REPORT INFORMATION
  Report Type: 
  Country: None (occurrence: None)
  Receive Date: 20110806
  Receipt Date: 20110104
  Transmission Date: 20111222
  Serious: No
  Sender: FDA-Public Use
  Company Number: US-ABBOTT-11P-163-0695595-00

PATIENT
  Sex: Male
  Weight: 99.88 kg

DRUGS (5)
  1. AVODART [Concomitant]
     Indication: PROSTATOMEGALY
  2. NIASPAN [Suspect]
     Indication: BLOOD CHOLESTEROL INCREASED
     Dates: start: 20100601
  3. LIPITOR [Concomitant]
     Indication: BLOOD CHOLESTEROL INCREASED
     Dates: start: 20080101
  4. TAMSULOSIN HCL [Concomitant]
     Indication: MICTURITION URGENCY
  5. AVALIDE [Concomitant]
     Indication: HYPERTENSION

REACTIONS (2)
  - FEELING HOT [None]
  - PAIN IN EXTREMITY [None]
